FAERS Safety Report 18824260 (Version 1)
Quarter: 2021Q1

REPORT INFORMATION
  Report Type: Spontaneous
  Country: US (occurrence: US)
  Receive Date: 20210202
  Receipt Date: 20210202
  Transmission Date: 20210419
  Serious: No
  Sender: FDA-Public Use
  Company Number: US-MYLANLABS-2021M1004550

PATIENT
  Age: 60 Year
  Sex: Female

DRUGS (3)
  1. LIDOCAINE PATCH [Suspect]
     Active Substance: LIDOCAINE
     Indication: PAIN IN EXTREMITY
     Dosage: 1 DOSAGE FORM, BID,1 PATCH 12 HOURS A DAY
     Route: 003
     Dates: start: 20210119
  2. SYNTHROID [Concomitant]
     Active Substance: LEVOTHYROXINE SODIUM
     Dosage: UNK
  3. LOSARTAN. [Concomitant]
     Active Substance: LOSARTAN
     Dosage: UNK

REACTIONS (2)
  - Off label use [Not Recovered/Not Resolved]
  - Product adhesion issue [Not Recovered/Not Resolved]

NARRATIVE: CASE EVENT DATE: 202101
